FAERS Safety Report 13819379 (Version 1)
Quarter: 2017Q3

REPORT INFORMATION
  Report Type: Report from Study
  Country: US (occurrence: US)
  Receive Date: 20170731
  Receipt Date: 20170731
  Transmission Date: 20171127
  Serious: No
  Sender: FDA-Public Use
  Company Number: US-EXELIXIS-CABO-17008873

PATIENT
  Sex: Male

DRUGS (2)
  1. CABOMETYX [Suspect]
     Active Substance: CABOZANTINIB S-MALATE
     Indication: RENAL CANCER
     Dosage: 60 MG, QD
     Route: 048
     Dates: start: 20160903, end: 201702
  2. CABOMETYX [Suspect]
     Active Substance: CABOZANTINIB S-MALATE
     Indication: BONE CANCER

REACTIONS (7)
  - Dysuria [Recovering/Resolving]
  - Balance disorder [Unknown]
  - Confusional state [Unknown]
  - Restlessness [Unknown]
  - Decreased appetite [Unknown]
  - Mental impairment [Unknown]
  - Treatment noncompliance [Unknown]
